FAERS Safety Report 9125558 (Version 1)
Quarter: 2013Q1

REPORT INFORMATION
  Report Type: Spontaneous
  Country: US (occurrence: US)
  Receive Date: 20130121
  Receipt Date: 20130121
  Transmission Date: 20140127
  Serious: Yes (Hospitalization)
  Sender: FDA-Public Use
  Company Number: US-AMGEN-USASP2013003470

PATIENT
  Age: 51 Year
  Sex: Female

DRUGS (1)
  1. FILGRASTIM [Suspect]
     Indication: NEUTROPENIA
     Dosage: UNK

REACTIONS (6)
  - Alveolitis [Unknown]
  - Acute respiratory distress syndrome [Unknown]
  - Hypoxia [Unknown]
  - Respiratory failure [Unknown]
  - Pneumocystis jirovecii pneumonia [Unknown]
  - White blood cell count increased [Unknown]
